FAERS Safety Report 7322918-2 (Version None)
Quarter: 2011Q1

REPORT INFORMATION
  Report Type: 
  Country: None (occurrence: None)
  Receive Date: 20110301
  Receipt Date: 20110215
  Transmission Date: 20110831
  Serious: Yes (Other)
  Sender: FDA-Public Use
  Company Number: DE-MYLANLABS-2010S1019685

PATIENT
  Sex: Male

DRUGS (2)
  1. IBUPROFEN [Suspect]
     Indication: CERVICOBRACHIAL SYNDROME
     Route: 048
     Dates: start: 20091101, end: 20100401
  2. IBUPROFEN [Suspect]
     Route: 048
     Dates: start: 20091101, end: 20100401

REACTIONS (4)
  - PALPITATIONS [None]
  - ANXIETY [None]
  - PANIC ATTACK [None]
  - NERVOUSNESS [None]
